FAERS Safety Report 7314579-3 (Version None)
Quarter: 2011Q1

REPORT INFORMATION
  Report Type: 
  Country: None (occurrence: None)
  Receive Date: 20110225
  Receipt Date: 20101101
  Transmission Date: 20110831
  Serious: No
  Sender: FDA-Public Use
  Company Number: US-MYLANLABS-2010S1018539

PATIENT
  Age: 15 Year
  Sex: Male
  Weight: 95 kg

DRUGS (2)
  1. ALCOHOL [Suspect]
  2. AMNESTEEM [Suspect]
     Indication: ACNE CYSTIC
     Route: 048
     Dates: start: 20100601, end: 20101006

REACTIONS (3)
  - ALANINE AMINOTRANSFERASE INCREASED [None]
  - BLOOD TRIGLYCERIDES INCREASED [None]
  - ASPARTATE AMINOTRANSFERASE INCREASED [None]
